FAERS Safety Report 17462282 (Version 2)
Quarter: 2020Q1

REPORT INFORMATION
  Report Type: Spontaneous
  Country: JP (occurrence: JP)
  Receive Date: 20200224
  Receipt Date: 20200229
  Transmission Date: 20200409
  Serious: Yes (Death, Other)
  Sender: FDA-Public Use
  Company Number: JP-AMGEN-JPNSP2020028699

PATIENT
  Age: 79 Year
  Sex: Female

DRUGS (5)
  1. IMIDAPRIL HYDROCHLORIDE [Concomitant]
     Active Substance: IMIDAPRIL HYDROCHLORIDE
     Dosage: UNK
  2. EVENITY [Suspect]
     Active Substance: ROMOSOZUMAB-AQQG
     Indication: OSTEOPOROSIS
     Dosage: 210 MILLIGRAM
     Route: 058
     Dates: start: 20190719
  3. AZELNIDIPINE [Concomitant]
     Active Substance: AZELNIDIPINE
     Dosage: UNK
  4. EDIROL [Concomitant]
     Active Substance: ELDECALCITOL
     Dosage: UNK
  5. URIADEC [Concomitant]
     Active Substance: TOPIROXOSTAT
     Dosage: UNK

REACTIONS (1)
  - Myocardial infarction [Fatal]
